FAERS Safety Report 5763622-1 (Version None)
Quarter: 2008Q2

REPORT INFORMATION
  Report Type: 
  Country: None (occurrence: None)
  Receive Date: 20080610
  Receipt Date: 20080526
  Transmission Date: 20081010
  Serious: Yes (Hospitalization)
  Sender: FDA-Public Use
  Company Number: PHHY2008JP06429

PATIENT
  Age: 5 Year
  Sex: Male

DRUGS (2)
  1. NEORAL [Suspect]
     Indication: APLASTIC ANAEMIA
     Dosage: 6 MG/KG/DAY
     Route: 048
  2. NEORAL [Suspect]
     Dosage: 2.7 MG/KG/DAY
     Route: 048
     Dates: end: 20080501

REACTIONS (2)
  - HAEMOLYTIC ANAEMIA [None]
  - HAPTOGLOBIN DECREASED [None]
